FAERS Safety Report 8014309-6 (Version None)
Quarter: 2011Q4

REPORT INFORMATION
  Report Type: 
  Country: None (occurrence: None)
  Receive Date: 20111229
  Receipt Date: 20111221
  Transmission Date: 20120403
  Serious: Yes (Death, Hospitalization)
  Sender: FDA-Public Use
  Company Number: JP-AMGEN-JPNCT2011061454

PATIENT
  Age: 72 Year
  Sex: Female
  Weight: 37 kg

DRUGS (32)
  1. PANITUMUMAB [Suspect]
     Dosage: 6 MG/KG, Q2WK
     Route: 041
     Dates: start: 20110209, end: 20110302
  2. LOBU [Concomitant]
     Dosage: UNK
     Route: 048
  3. LOCOID [Concomitant]
     Dosage: UNK
     Route: 062
  4. PANITUMUMAB [Suspect]
     Indication: COLORECTAL CANCER
     Dosage: 6 MG/KG, Q2WK
     Route: 041
     Dates: start: 20100908, end: 20100929
  5. PENTAZOCINE LACTATE [Concomitant]
     Dosage: UNK
     Route: 048
  6. CORTICOSTEROIDS [Concomitant]
     Indication: PROPHYLAXIS
     Dosage: UNK
     Route: 065
  7. FUCIDIN LEO [Concomitant]
     Dosage: UNK
     Route: 062
  8. ZOFRAN [Concomitant]
     Dosage: UNK
     Route: 048
  9. MYSER [Concomitant]
     Dosage: UNK
     Route: 062
  10. PANCREL [Concomitant]
     Indication: GASTROOESOPHAGEAL REFLUX DISEASE
     Dosage: UNK
     Route: 048
  11. PANITUMUMAB [Suspect]
     Dosage: 6 MG/KG, Q2WK
     Route: 041
     Dates: start: 20101208, end: 20101208
  12. IRINOTECAN HCL [Concomitant]
     Indication: COLORECTAL CANCER
     Route: 041
     Dates: start: 20100908, end: 20110306
  13. FLUOROURACIL [Concomitant]
     Route: 041
     Dates: start: 20100908, end: 20110306
  14. PROTECADIN [Concomitant]
     Dosage: UNK
     Route: 048
  15. EMEND [Concomitant]
     Dosage: UNK
     Route: 048
  16. OXYCONTIN [Concomitant]
     Dosage: UNK
     Route: 048
  17. NOVAMIN [Concomitant]
     Dosage: UNK
     Route: 042
  18. PRIMPERAN TAB [Concomitant]
     Dosage: UNK
     Route: 042
  19. POLARAMINE [Concomitant]
     Dosage: UNK
     Route: 042
  20. PANITUMUMAB [Suspect]
     Dosage: 6 MG/KG, Q2WK
     Route: 041
     Dates: start: 20101027, end: 20101027
  21. PANITUMUMAB [Suspect]
     Dosage: 6 MG/KG, Q2WK
     Route: 041
     Dates: start: 20110330, end: 20110525
  22. PANITUMUMAB [Suspect]
     Dosage: 6 MG/KG, Q2WK
     Route: 041
     Dates: start: 20110628
  23. FLUOROURACIL [Concomitant]
     Indication: COLORECTAL CANCER
     Route: 040
     Dates: start: 20100908, end: 20110306
  24. SELBEX [Concomitant]
     Dosage: UNK
     Route: 048
  25. MORPHINE HYDROCHLORIDE [Concomitant]
     Dosage: UNK
     Route: 048
  26. FENTANYL-100 [Concomitant]
     Dosage: UNK
     Route: 062
  27. LEVOLEUCOVORIN CALCIUM [Concomitant]
     Indication: COLORECTAL CANCER
     Route: 041
     Dates: start: 20100908, end: 20110306
  28. HIRUDOID [Concomitant]
     Dosage: UNK
     Route: 062
  29. GASMOTIN [Concomitant]
     Indication: GASTROOESOPHAGEAL REFLUX DISEASE
     Dosage: UNK
     Route: 048
  30. ROZECLART [Concomitant]
     Indication: CHOLANGITIS CHRONIC
     Dosage: UNK
     Route: 042
  31. ALLOID G [Concomitant]
     Indication: GASTROOESOPHAGEAL REFLUX DISEASE
     Dosage: UNK
     Route: 048
  32. CEFDINIR [Concomitant]
     Indication: CHOLANGITIS CHRONIC
     Dosage: UNK
     Route: 048

REACTIONS (4)
  - CHOLANGITIS ACUTE [None]
  - PRURITUS [None]
  - COLORECTAL CANCER [None]
  - RASH MACULO-PAPULAR [None]
